FAERS Safety Report 16565105 (Version 1)
Quarter: 2019Q3

REPORT INFORMATION
  Report Type: Report from Study
  Country: BE (occurrence: BE)
  Receive Date: 20190712
  Receipt Date: 20190712
  Transmission Date: 20191004
  Serious: Yes (Other)
  Sender: FDA-Public Use
  Company Number: BE-ROCHE-2354610

PATIENT
  Age: 67 Year
  Sex: Male

DRUGS (7)
  1. HEPARIN [Suspect]
     Active Substance: HEPARIN SODIUM
     Dosage: 1000 IU/HOUR
     Route: 042
  2. ASPIRIN [ACETYLSALICYLIC ACID] [Suspect]
     Active Substance: ASPIRIN
     Indication: ACUTE MYOCARDIAL INFARCTION
     Route: 042
  3. HEPARIN [Suspect]
     Active Substance: HEPARIN SODIUM
     Indication: ACUTE MYOCARDIAL INFARCTION
     Route: 040
  4. ALTEPLASE. [Suspect]
     Active Substance: ALTEPLASE
     Dosage: DURING THE NEXT TWO HOURS
     Route: 041
  5. ASPIRIN [ACETYLSALICYLIC ACID] [Suspect]
     Active Substance: ASPIRIN
     Dosage: 75-125 MG ORALLY EVERY OTHER DAY UNTIL ANGIOGRAPHY
     Route: 048
  6. ALTEPLASE. [Suspect]
     Active Substance: ALTEPLASE
     Dosage: DURING ONE HOUR
     Route: 041
  7. ALTEPLASE. [Suspect]
     Active Substance: ALTEPLASE
     Indication: ACUTE MYOCARDIAL INFARCTION
     Route: 040

REACTIONS (2)
  - Cerebral haemorrhage [Unknown]
  - Cerebellar syndrome [Unknown]
